FAERS Safety Report 6910410-6 (Version None)
Quarter: 2010Q3

REPORT INFORMATION
  Report Type: 
  Country: None (occurrence: None)
  Receive Date: 20100806
  Receipt Date: 20100727
  Transmission Date: 20110219
  Serious: Yes (Hospitalization)
  Sender: FDA-Public Use
  Company Number: ES-PFIZER INC-2010083352

PATIENT
  Age: 68 Year
  Sex: Male

DRUGS (1)
  1. SALAZOPYRIN [Suspect]
     Dosage: UNK
     Route: 048
     Dates: start: 20100501, end: 20100501

REACTIONS (4)
  - NEUTROPENIA [None]
  - PYREXIA [None]
  - RASH PUSTULAR [None]
  - RENAL FAILURE ACUTE [None]
